FAERS Safety Report 8742938 (Version 2)
Quarter: 2012Q4

REPORT INFORMATION
  Report Type: Spontaneous
  Country: ES (occurrence: None)
  Receive Date: 20120807
  Receipt Date: 20120814
  Transmission Date: 20130627
  Serious: Yes (Other)
  Sender: FDA-Public Use
  Company Number: 2012AP002285

PATIENT
  Age: 3 Year
  Sex: Male

DRUGS (7)
  1. LEVOFLOXACIN [Suspect]
     Indication: DISSEMINATED TUBERCULOSIS
  2. LEVOFLOXACIN [Suspect]
     Indication: OFF LABEL USE
  3. ETHAMBUTOL [Suspect]
     Indication: DISSEMINATED TUBERCULOSIS
  4. PYRAZINAMIDE [Concomitant]
  5. AMIKACIN [Suspect]
  6. CYCLOSERINE (CYCLOSERINE) [Concomitant]
  7. LINEZOLID (LINEZOLID) [Concomitant]

REACTIONS (4)
  - Arthralgia [None]
  - Off label use [None]
  - Hepatitis [None]
  - Pleural effusion [None]
